FAERS Safety Report 25596143 (Version 1)
Quarter: 2025Q3

REPORT INFORMATION
  Report Type: Spontaneous
  Country: US (occurrence: US)
  Receive Date: 20250723
  Receipt Date: 20250723
  Transmission Date: 20251021
  Serious: No
  Sender: SANOFI AVENTIS
  Company Number: US-SA-2025SA210617

PATIENT
  Sex: Female
  Weight: 72.109 kg

DRUGS (5)
  1. DUPIXENT [Suspect]
     Active Substance: DUPILUMAB
     Indication: Neurodermatitis
     Dosage: 300 MG, QOW
     Route: 058
  2. ZINC [Concomitant]
     Active Substance: ZINC
  3. VITAMIN D3 [Concomitant]
     Active Substance: CHOLECALCIFEROL
  4. COENZYME Q10 [Concomitant]
     Active Substance: DIETARY SUPPLEMENT\UBIDECARENONE
  5. Ginger and turmeric [Concomitant]

REACTIONS (1)
  - Arthropathy [Unknown]
